FAERS Safety Report 6743135-0 (Version None)
Quarter: 2010Q2

REPORT INFORMATION
  Report Type: 
  Country: None (occurrence: None)
  Receive Date: 20100527
  Receipt Date: 20100514
  Transmission Date: 20101027
  Serious: Yes (Other)
  Sender: FDA-Public Use
  Company Number: PHHY2010JP13782

PATIENT
  Sex: Female
  Weight: 37 kg

DRUGS (9)
  1. ICL670A ICL+DISTAB [Suspect]
     Indication: IRON OVERLOAD
     Dosage: 1000 MG DAILY
     Dates: start: 20090619, end: 20090703
  2. ICL670A ICL+DISTAB [Suspect]
     Indication: MYELODYSPLASTIC SYNDROME
     Dosage: 1000 MG DAILY
     Route: 048
     Dates: start: 20090710, end: 20090807
  3. NEORAL [Suspect]
     Dosage: 300 MG DAILY
     Route: 048
     Dates: start: 20090710, end: 20091218
  4. PRIMOBOLAN [Concomitant]
     Dosage: 15 MG, UNK
     Route: 048
     Dates: start: 20090424, end: 20090710
  5. GLAKAY [Concomitant]
     Dosage: 45 MG, UNK
     Route: 048
     Dates: start: 20090424, end: 20090710
  6. ONEALFA [Concomitant]
     Dosage: 1 UG, UNK
     Route: 048
     Dates: start: 20090501, end: 20090710
  7. DIFLUCAN [Concomitant]
     Indication: PROPHYLAXIS
     Dosage: 100 MG, UNK
     Route: 048
     Dates: start: 20090612, end: 20091218
  8. RED BLOOD CELLS [Concomitant]
     Dosage: 2 UNITS ALMOST EVERY WEEK FROM
     Dates: start: 20080424, end: 20091218
  9. PLATELETS [Concomitant]
     Dosage: 10 UNITS
     Dates: start: 20090424, end: 20091218

REACTIONS (5)
  - BLOOD BILIRUBIN INCREASED [None]
  - NASOPHARYNGITIS [None]
  - NAUSEA [None]
  - PRURITUS [None]
  - RENAL IMPAIRMENT [None]
